FAERS Safety Report 8583853-5 (Version None)
Quarter: 2012Q3

REPORT INFORMATION
  Report Type: 
  Country: None (occurrence: None)
  Receive Date: 20120810
  Receipt Date: 20120801
  Transmission Date: 20120928
  Serious: Yes (Life-Threatening)
  Sender: FDA-Public Use
  Company Number: GB-009507513-1208GBR001951

PATIENT

DRUGS (6)
  1. EZETIMIBE [Suspect]
     Route: 048
  2. SULFAMETHOXAZOLE AND TRIMETHOPRIM [Suspect]
  3. CINACALCET HYDROCHLORIDE [Concomitant]
  4. TACROLIMUS [Concomitant]
  5. VALGANCICLOVIR HCL [Concomitant]
  6. LANSOPRAZOLE [Suspect]
     Dosage: 30 MG, QD
     Route: 048

REACTIONS (1)
  - NEUTROPENIA [None]
